FAERS Safety Report 13097286 (Version 1)
Quarter: 2017Q1

REPORT INFORMATION
  Report Type: Spontaneous
  Country: US (occurrence: US)
  Receive Date: 20170107
  Receipt Date: 20170107
  Transmission Date: 20170428
  Serious: Yes (Hospitalization)
  Sender: FDA-Public Use
  Company Number: None

PATIENT
  Age: 77 Year
  Sex: Female

DRUGS (19)
  1. MELATONIN [Concomitant]
     Active Substance: MELATONIN
  2. ALBUTEROL NEB [Concomitant]
  3. FLOVENT [Concomitant]
     Active Substance: FLUTICASONE PROPIONATE
  4. LASIX [Concomitant]
     Active Substance: FUROSEMIDE
  5. POTASSIUM [Concomitant]
     Active Substance: POTASSIUM
  6. METHYLDOPA. [Concomitant]
     Active Substance: METHYLDOPA
  7. METOPROLOL TARTRATE. [Concomitant]
     Active Substance: METOPROLOL TARTRATE
  8. LIPITOR [Concomitant]
     Active Substance: ATORVASTATIN CALCIUM
  9. ASPIRIN. [Concomitant]
     Active Substance: ASPIRIN
  10. TYLENOL [Concomitant]
     Active Substance: ACETAMINOPHEN
  11. PREDNISONE. [Concomitant]
     Active Substance: PREDNISONE
  12. AMLODIPINE [Concomitant]
     Active Substance: AMLODIPINE BESYLATE
  13. BOSULIF [Suspect]
     Active Substance: BOSUTINIB MONOHYDRATE
     Indication: NEOPLASM MALIGNANT
     Route: 048
     Dates: start: 201409
  14. NYSTATIN. [Concomitant]
     Active Substance: NYSTATIN
  15. ALLOPURINOL. [Concomitant]
     Active Substance: ALLOPURINOL
  16. VITAMIN D2 [Concomitant]
     Active Substance: ERGOCALCIFEROL
  17. NYSTATIN CRE [Concomitant]
  18. CHERRY LIQ FLAVOR [Concomitant]
  19. ACIDOPHILUS CAP [Concomitant]

REACTIONS (1)
  - Lung infection [None]

NARRATIVE: CASE EVENT DATE: 201612
